FAERS Safety Report 20804026 (Version 2)
Quarter: 2025Q1

REPORT INFORMATION
  Report Type: Other
  Country: GB (occurrence: GB)
  Receive Date: 20220509
  Receipt Date: 20250118
  Transmission Date: 20250408
  Serious: No
  Sender: SIGA TECHNOLOGIES, INC.
  Company Number: GB-SIGA Technologies, Inc.-2128602

PATIENT
  Age: 31 Year
  Sex: Female

DRUGS (2)
  1. TPOXX [Suspect]
     Active Substance: TECOVIRIMAT
     Indication: Orthopoxvirus test positive
     Dates: start: 20210616, end: 20210630
  2. ACETAMINOPHEN [Concomitant]
     Active Substance: ACETAMINOPHEN

REACTIONS (3)
  - Decreased appetite [Recovered/Resolved]
  - Neutrophil count decreased [Recovered/Resolved]
  - Blood creatinine increased [Recovered/Resolved]

NARRATIVE: CASE EVENT DATE: 20210618
